FAERS Safety Report 9130760 (Version 1)
Quarter: 2013Q1

REPORT INFORMATION
  Report Type: Spontaneous
  Country: GB (occurrence: GB)
  Receive Date: 20130301
  Receipt Date: 20130301
  Transmission Date: 20140127
  Serious: Yes (Other)
  Sender: FDA-Public Use
  Company Number: PHFR2013GB001425

PATIENT
  Age: 59 Year
  Sex: Female
  Weight: 81 kg

DRUGS (2)
  1. VALSARTAN [Suspect]
     Indication: HYPERTENSION
     Dosage: 3 MG, UNK
     Route: 048
     Dates: start: 20111222, end: 20121023
  2. AMLODIPINE [Concomitant]
     Dosage: UNK UKN, UNK

REACTIONS (4)
  - Gastrointestinal carcinoma [Unknown]
  - Diarrhoea [Recovered/Resolved]
  - Stress [Unknown]
  - Quality of life decreased [Unknown]
